FAERS Safety Report 5352723-8 (Version None)
Quarter: 2007Q2

REPORT INFORMATION
  Report Type: 
  Country: None (occurrence: None)
  Receive Date: 20070611
  Receipt Date: 20070607
  Transmission Date: 20071010
  Serious: Yes (Hospitalization)
  Sender: FDA-Public Use
  Company Number: IT-SHR-IT-2007-021329

PATIENT
  Age: 36 Year
  Sex: Female

DRUGS (15)
  1. CAMPATH [Suspect]
     Indication: TRANSPLANT REJECTION
     Dosage: 18 MG, 1 DOSE
     Route: 042
     Dates: start: 20061218, end: 20061218
  2. DARILIN [Concomitant]
     Dosage: 450 MG, UNK
     Route: 048
  3. DISSENTEN [Concomitant]
     Dosage: 8 MG, UNK
     Route: 048
  4. LANSOX [Concomitant]
     Dosage: 60 MG, UNK
     Route: 048
  5. LASIX [Concomitant]
     Dosage: 50 MG, UNK
     Route: 048
  6. NORVASK [Concomitant]
     Dosage: 10 MG, UNK
     Route: 048
  7. PROGRAF [Concomitant]
     Dosage: 10 MG, UNK
     Route: 048
  8. RAPAMUNE [Concomitant]
     Dosage: 2 MG, UNK
     Route: 048
  9. ROCALTROL [Concomitant]
     Dosage: .5 A?G, UNK
     Route: 048
  10. ALLOPURINOL [Concomitant]
     Dosage: 300 MG, UNK
     Route: 048
  11. CALCIUM CARBONATE [Concomitant]
     Dosage: 6 G, UNK
     Route: 048
  12. BACTRIM [Concomitant]
     Dosage: 480 MG, UNK
     Route: 048
  13. TICLID [Concomitant]
     Dosage: 250 MG, UNK
     Route: 048
  14. SOLU-MEDROL [Concomitant]
     Dosage: 20 MG, UNK
     Route: 042
  15. CATAPRESSAN TTS [Concomitant]
     Dosage: 5 MG, UNK
     Route: 062

REACTIONS (4)
  - DERMATITIS BULLOUS [None]
  - NECROSIS [None]
  - PAIN [None]
  - RASH [None]
